FAERS Safety Report 5616553-1 (Version None)
Quarter: 2008Q1

REPORT INFORMATION
  Report Type: 
  Country: None (occurrence: None)
  Receive Date: 20080207
  Receipt Date: 20070726
  Transmission Date: 20080703
  Serious: No
  Sender: FDA-Public Use
  Company Number: A0623798A

PATIENT
  Sex: Female

DRUGS (1)
  1. PAXIL CR [Suspect]
     Indication: PANIC ATTACK
     Dosage: 37.5MG PER DAY
     Route: 048

REACTIONS (3)
  - ANXIETY [None]
  - DRUG TOLERANCE INCREASED [None]
  - THERAPEUTIC RESPONSE DECREASED [None]
